FAERS Safety Report 4717713-4 (Version None)
Quarter: 2005Q3

REPORT INFORMATION
  Report Type: 
  Country: None (occurrence: None)
  Receive Date: 20050715
  Receipt Date: 20050706
  Transmission Date: 20060218
  Serious: Yes (Other)
  Sender: FDA-Public Use
  Company Number: 2005-02353

PATIENT
  Age: 54 Year
  Sex: Female

DRUGS (1)
  1. AFEDITAB (WATSON LABORATORIES) (NIFEDIPINE) TABLET (EXTENDED RELEASE), [Suspect]
     Indication: HYPERTENSION
     Dosage: 1 TABLET, DAILY, ORAL
     Route: 048
     Dates: end: 20050101

REACTIONS (2)
  - DRUG WITHDRAWAL SYNDROME [None]
  - HYPERTENSIVE CRISIS [None]
